FAERS Safety Report 4926551-9 (Version None)
Quarter: 2006Q1

REPORT INFORMATION
  Report Type: 
  Country: None (occurrence: None)
  Receive Date: 20060228
  Receipt Date: 20050429
  Transmission Date: 20060701
  Serious: No
  Sender: FDA-Public Use
  Company Number: US-GLAXOSMITHKLINE-A0556333A

PATIENT
  Age: 45 Year
  Sex: Female

DRUGS (10)
  1. LAMICTAL [Suspect]
     Indication: DRUG USE FOR UNKNOWN INDICATION
     Dosage: 150MG PER DAY
     Route: 048
     Dates: start: 20050220, end: 20050429
  2. DECADRON SRC [Concomitant]
  3. LISINOPRIL [Concomitant]
  4. RANITIDINE [Concomitant]
  5. LIPITOR [Concomitant]
  6. GLIPIZIDE [Concomitant]
  7. KEPPRA [Concomitant]
  8. RISPERDAL [Concomitant]
  9. COMPAZINE [Concomitant]
  10. HYDROXYZINE [Concomitant]
     Dates: start: 20050429

REACTIONS (2)
  - OEDEMA PERIPHERAL [None]
  - RASH [None]
